FAERS Safety Report 6640163-0 (Version None)
Quarter: 2010Q1

REPORT INFORMATION
  Report Type: 
  Country: None (occurrence: None)
  Receive Date: 20100315
  Receipt Date: 20100304
  Transmission Date: 20100710
  Serious: Yes (Hospitalization, Other)
  Sender: FDA-Public Use
  Company Number: 2010US000742

PATIENT
  Age: 19 Year
  Sex: Male
  Weight: 55 kg

DRUGS (4)
  1. PROGRAF [Suspect]
     Indication: RENAL TRANSPLANT
     Dosage: 6 MG, BID
     Dates: start: 20081110
  2. MYCOPHENOLATE MOFETIL [Concomitant]
  3. PREDNISONE [Concomitant]
  4. VALGANCICLOVIR HCL [Concomitant]

REACTIONS (6)
  - APLASIA PURE RED CELL [None]
  - DIABETES MELLITUS [None]
  - DIABETIC KETOACIDOSIS [None]
  - ERYTHEMA INFECTIOSUM [None]
  - PULMONARY EMBOLISM [None]
  - VENOUS THROMBOSIS LIMB [None]
